FAERS Safety Report 12482049 (Version 1)
Quarter: 2016Q2

REPORT INFORMATION
  Report Type: Report from Study
  Country: BR (occurrence: BR)
  Receive Date: 20160620
  Receipt Date: 20160620
  Transmission Date: 20160815
  Serious: Yes (Other)
  Sender: FDA-Public Use
  Company Number: PHHY2016BR083428

PATIENT
  Sex: Female
  Weight: 76 kg

DRUGS (1)
  1. ACLASTA [Suspect]
     Active Substance: ZOLEDRONIC ACID
     Indication: OSTEOPOROSIS
     Dosage: 5 MG, Q12MO
     Route: 042

REACTIONS (8)
  - Osteoarthritis [Unknown]
  - Head discomfort [Unknown]
  - Pain [Unknown]
  - Coronary artery disease [Unknown]
  - Arthritis [Unknown]
  - Weight decreased [Unknown]
  - Joint injury [Unknown]
  - Body height decreased [Unknown]
